FAERS Safety Report 8287257-4 (Version None)
Quarter: 2012Q2

REPORT INFORMATION
  Report Type: 
  Country: None (occurrence: None)
  Receive Date: 20120416
  Receipt Date: 20120416
  Transmission Date: 20120825
  Serious: No
  Sender: FDA-Public Use
  Company Number: None

PATIENT
  Age: 56 Year
  Sex: Male
  Weight: 74.842 kg

DRUGS (1)
  1. AXIRON [Suspect]
     Indication: TESTICULAR DISORDER
     Dosage: ^ONE PUMP PER UNDER ARM^
     Route: 062
     Dates: start: 20120119, end: 20120409

REACTIONS (16)
  - AGITATION [None]
  - CONFUSIONAL STATE [None]
  - DISTURBANCE IN ATTENTION [None]
  - DEPRESSED MOOD [None]
  - LETHARGY [None]
  - VISION BLURRED [None]
  - AGGRESSION [None]
  - DYSLEXIA [None]
  - LIBIDO DECREASED [None]
  - OVERDOSE [None]
  - DIZZINESS [None]
  - AMNESIA [None]
  - CHEST PAIN [None]
  - PRODUCT QUALITY ISSUE [None]
  - POOR QUALITY SLEEP [None]
  - HEADACHE [None]
